FAERS Safety Report 9526815 (Version 1)
Quarter: 2013Q3

REPORT INFORMATION
  Report Type: Report from Study
  Country: DE (occurrence: DE)
  Receive Date: 20130916
  Receipt Date: 20130916
  Transmission Date: 20140515
  Serious: Yes (Other)
  Sender: FDA-Public Use
  Company Number: DE-GLAXOSMITHKLINE-Z0017497B

PATIENT
  Age: 73 Year
  Sex: Female
  Weight: 73 kg

DRUGS (5)
  1. DABRAFENIB [Suspect]
     Indication: MALIGNANT MELANOMA
     Dosage: 150MG TWICE PER DAY
     Route: 048
     Dates: start: 20120709
  2. PLACEBO [Suspect]
     Indication: MALIGNANT MELANOMA
     Route: 048
     Dates: start: 20120710
  3. CLEXANE [Concomitant]
     Indication: ATRIAL FIBRILLATION
     Dosage: 60MG PER DAY
     Route: 058
     Dates: start: 20121001
  4. TORASEMID [Concomitant]
     Indication: ATRIAL FIBRILLATION
     Dosage: 5MG PER DAY
     Route: 048
     Dates: start: 20121017
  5. METOPROLOL [Concomitant]
     Indication: ATRIAL FIBRILLATION
     Dosage: 100MG TWICE PER DAY
     Route: 048
     Dates: start: 20121002

REACTIONS (1)
  - Ejection fraction decreased [Not Recovered/Not Resolved]
